FAERS Safety Report 9511360 (Version 1)
Quarter: 2013Q1

REPORT INFORMATION
  Report Type: Spontaneous
  Country: US (occurrence: None)
  Receive Date: 20130305
  Receipt Date: 20130305
  Transmission Date: 20140127
  Serious: Yes (Other)
  Sender: FDA-Public Use
  Company Number: 163-21880-12103306

PATIENT
  Age: 88 Year
  Sex: Male
  Weight: 49.44 kg

DRUGS (9)
  1. REVLIMID [Suspect]
     Indication: MYELODYSPLASTIC SYNDROME
     Dosage: 7.5 MG, 21 IN 28 D, PO
     Route: 048
     Dates: start: 20120823, end: 20120920
  2. SYNTHROID (LEVOTHYROXINE SODIUM) [Concomitant]
  3. FLOMAX [Concomitant]
  4. KCL (POTASSIUM CHLORIDE) [Concomitant]
  5. FAMCICLOVIR (FAMCICLOVIR) [Concomitant]
  6. FUROSEMIDE (FUROSEMIDE) [Concomitant]
  7. VYTORIN (INEGY) [Concomitant]
  8. NIASPAN (NICOTINIC ACID) [Concomitant]
  9. XALATAN (LATANOPROST) (0.005 PERCENT, UNKNOWN) [Concomitant]

REACTIONS (1)
  - Platelet count decreased [None]
